FAERS Safety Report 13483003 (Version 6)
Quarter: 2018Q1

REPORT INFORMATION
  Report Type: Report from Study
  Country: US (occurrence: US)
  Receive Date: 20170426
  Receipt Date: 20180304
  Transmission Date: 20180508
  Serious: No
  Sender: FDA-Public Use
  Company Number: PHEH2017US012119

PATIENT
  Sex: Female

DRUGS (1)
  1. AFINITOR [Suspect]
     Active Substance: EVEROLIMUS
     Indication: ASTROCYTOMA, LOW GRADE
     Dosage: 5 MG, QD
     Route: 048
     Dates: start: 20170316

REACTIONS (9)
  - Cough [Not Recovered/Not Resolved]
  - Arthropod bite [Unknown]
  - Pyrexia [Unknown]
  - Hypersensitivity [Unknown]
  - Malaise [Unknown]
  - Vomiting [Unknown]
  - Ear infection [Unknown]
  - Influenza [Unknown]
  - Rash [Unknown]
